FAERS Safety Report 24327373 (Version 2)
Quarter: 2025Q1

REPORT INFORMATION
  Report Type: Spontaneous
  Country: DE (occurrence: DE)
  Receive Date: 20240917
  Receipt Date: 20250319
  Transmission Date: 20250409
  Serious: Yes (Other)
  Sender: RANBAXY
  Company Number: DE-SUN PHARMACEUTICAL INDUSTRIES LTD-2024R1-468000

PATIENT
  Age: 37 Year
  Sex: Female

DRUGS (3)
  1. PREGABALIN [Suspect]
     Active Substance: PREGABALIN
     Indication: Bipolar II disorder
     Dosage: 50 MILLIGRAM, DAILY
     Route: 065
  2. PREGABALIN [Suspect]
     Active Substance: PREGABALIN
     Dosage: 100 MILLIGRAM, DAILY
     Route: 065
  3. QUETIAPINE [Concomitant]
     Active Substance: QUETIAPINE
     Indication: Bipolar II disorder
     Dosage: 200 MILLIGRAM, DAILY
     Route: 065

REACTIONS (2)
  - Suicidal ideation [Recovering/Resolving]
  - Self-destructive behaviour [Unknown]
